FAERS Safety Report 7463956-9 (Version None)
Quarter: 2011Q2

REPORT INFORMATION
  Report Type: 
  Country: None (occurrence: None)
  Receive Date: 20110506
  Receipt Date: 20110503
  Transmission Date: 20111010
  Serious: Yes (Life-Threatening, Hospitalization)
  Sender: FDA-Public Use
  Company Number: GB-BAYER-2011-038294

PATIENT
  Age: 89 Year
  Sex: Male

DRUGS (9)
  1. ISOSORBIDE MONONITRATE [Concomitant]
  2. ZOLADEX [Concomitant]
  3. ASPIRIN [Concomitant]
  4. DOXYCYCLINE [Concomitant]
  5. LANSOPRAZOLE [Concomitant]
  6. NITROLINGUAL [Concomitant]
  7. SIMVASTATIN [Concomitant]
  8. CIPROFLOXACIN [Suspect]
     Indication: LOWER RESPIRATORY TRACT INFECTION
     Dosage: 500 MG, BID
     Route: 048
     Dates: start: 20110409, end: 20110409
  9. METOPROLOL TARTRATE [Concomitant]

REACTIONS (1)
  - SUPRAVENTRICULAR TACHYCARDIA [None]
